FAERS Safety Report 9248538 (Version 1)
Quarter: 2013Q1

REPORT INFORMATION
  Report Type: Spontaneous
  Country: US (occurrence: None)
  Receive Date: 20130305
  Receipt Date: 20130305
  Transmission Date: 20140127
  Serious: Yes (Hospitalization)
  Sender: FDA-Public Use
  Company Number: 163-21880-12092008

PATIENT
  Age: 75 Year
  Sex: Female

DRUGS (11)
  1. REVLIMID [Suspect]
     Indication: PLASMA CELL MYELOMA
     Dosage: 1 IN 2 D
     Route: 048
     Dates: start: 201112
  2. CALCIUM (CALCIUM) [Concomitant]
  3. QUINAPRIL (QUINAPRIL) [Concomitant]
  4. METOPROLOL (METOPROLOL) [Concomitant]
  5. LIPITOR (ATORVASTATIN) [Concomitant]
  6. HCTZ (HYDROCHLOROTHIAZIDE) [Concomitant]
  7. VITAMINS [Concomitant]
  8. VITAMIN C [Concomitant]
  9. VITAMIN D (ERGOCALCIFEROL) [Concomitant]
  10. ADVAIR (SERETIDE MITE) [Concomitant]
  11. ASPIRIN (ACETYLSALICYLIC ACID) [Concomitant]

REACTIONS (2)
  - Appendicitis perforated [None]
  - Renal failure [None]
